FAERS Safety Report 13751167 (Version 3)
Quarter: 2017Q3

REPORT INFORMATION
  Report Type: Spontaneous
  Country: ZA (occurrence: ZA)
  Receive Date: 20170713
  Receipt Date: 20170912
  Transmission Date: 20171127
  Serious: Yes (Hospitalization, Other)
  Sender: FDA-Public Use
  Company Number: ZA-FERRINGPH-2017FE03380

PATIENT

DRUGS (21)
  1. CONCERTA [Concomitant]
     Active Substance: METHYLPHENIDATE HYDROCHLORIDE
     Dosage: 72 MG, DAILY (MANE)
     Route: 048
  2. ESOMEPRAZOL                        /01479301/ [Concomitant]
     Active Substance: ESOMEPRAZOLE
     Indication: GASTROOESOPHAGEAL REFLUX DISEASE
     Dosage: 40 MG, DAILY (NOCTE)
  3. TRAMACET [Concomitant]
     Active Substance: ACETAMINOPHEN\TRAMADOL
     Indication: SCIATICA
     Dosage: UNK, 4 TIMES DAILY (AS NEEDED)
  4. EPITEC [Concomitant]
     Active Substance: LAMOTRIGINE
     Indication: BIPOLAR DISORDER
     Dosage: 200 MG, 2 TIMES DAILY
     Route: 048
  5. VALDOXAN [Concomitant]
     Active Substance: AGOMELATINE
     Indication: BIPOLAR DISORDER
     Dosage: 50 MG, DAILY (NOCTE)
     Route: 048
  6. FLUANXOL                           /00109702/ [Concomitant]
     Active Substance: FLUPENTIXOL
     Dosage: 1 MG, 2 TIMES DAILY
     Route: 048
  7. ATORVASTATIN [Concomitant]
     Active Substance: ATORVASTATIN
     Dosage: 10 MG, DAILY (NOCTE)
  8. ARCOXIA [Concomitant]
     Active Substance: ETORICOXIB
     Indication: NEURALGIA
  9. GEODON [Concomitant]
     Active Substance: ZIPRASIDONE HYDROCHLORIDE\ZIPRASIDONE MESYLATE
     Dosage: 140 MG, DAILY (NOCTE)
     Route: 048
  10. DDAVP [Suspect]
     Active Substance: DESMOPRESSIN ACETATE
     Indication: DIABETES INSIPIDUS
     Dosage: 1 DF, DAILY AT NIGHT
     Route: 065
     Dates: end: 20150724
  11. EUTHYROX [Concomitant]
     Active Substance: LEVOTHYROXINE SODIUM
     Dosage: 100 ?G, DAILY (2 DAYS/WEEK)
     Route: 048
  12. SEROQUEL [Concomitant]
     Active Substance: QUETIAPINE FUMARATE
     Dosage: 25 MG, DAILY (NOCTE)
     Route: 048
  13. DDAVP [Suspect]
     Active Substance: DESMOPRESSIN ACETATE
     Indication: PRODUCT USED FOR UNKNOWN INDICATION
     Dosage: 0.2 MG, 3 TIMES DAILY
     Route: 065
     Dates: end: 20170515
  14. ABILIFY [Concomitant]
     Active Substance: ARIPIPRAZOLE
     Indication: BIPOLAR DISORDER
     Dosage: 15 MG, DAILY
  15. TRAMACET [Concomitant]
     Active Substance: ACETAMINOPHEN\TRAMADOL
     Indication: NEURALGIA
  16. EUTHYROX [Concomitant]
     Active Substance: LEVOTHYROXINE SODIUM
     Indication: HYPOTHYROIDISM
     Dosage: 150 ?G, DAILY  (5 DAYS/WEEK)
     Route: 048
  17. LYRICA [Concomitant]
     Active Substance: PREGABALIN
     Indication: NEURALGIA
  18. CONCERTA [Concomitant]
     Active Substance: METHYLPHENIDATE HYDROCHLORIDE
     Indication: ATTENTION DEFICIT/HYPERACTIVITY DISORDER
     Dosage: 54 MG, DAILY (MANE)
     Route: 048
  19. ARCOXIA [Concomitant]
     Active Substance: ETORICOXIB
     Indication: SCIATICA
     Dosage: 120 MG, UNK
  20. LYRICA [Concomitant]
     Active Substance: PREGABALIN
     Indication: SCIATICA
     Dosage: 75 MG, 2 TIMES DAILY
  21. RIVOTRIL [Concomitant]
     Active Substance: CLONAZEPAM
     Dosage: 2 MG, DAILY (NOCTE)
     Route: 048

REACTIONS (4)
  - Pituitary-dependent Cushing^s syndrome [Unknown]
  - Cortisol increased [Recovered/Resolved]
  - Hyponatraemia [Unknown]
  - Overdose [Unknown]

NARRATIVE: CASE EVENT DATE: 201506
